FAERS Safety Report 10797124 (Version 1)
Quarter: 2015Q1

REPORT INFORMATION
  Report Type: Spontaneous
  Country: US (occurrence: US)
  Receive Date: 20150216
  Receipt Date: 20150216
  Transmission Date: 20150721
  Serious: No
  Sender: FDA-Public Use
  Company Number: US-TEVA-469853USA

PATIENT
  Sex: Female

DRUGS (1)
  1. ALENDRONIC ACID [Suspect]
     Active Substance: ALENDRONIC ACID

REACTIONS (8)
  - Flatulence [Unknown]
  - Sinusitis [Unknown]
  - Cystitis [Unknown]
  - Gastrooesophageal reflux disease [Unknown]
  - Chills [Unknown]
  - Eructation [Unknown]
  - Ear infection [Unknown]
  - Electrocardiogram abnormal [Unknown]
